FAERS Safety Report 10946758 (Version 1)
Quarter: 2015Q1

REPORT INFORMATION
  Report Type: Spontaneous
  Country: US (occurrence: None)
  Receive Date: 20150212
  Receipt Date: 20150212
  Transmission Date: 20150721
  Serious: No
  Sender: FDA-Public Use
  Company Number: TPA2009A01701

PATIENT
  Age: 71 Year
  Sex: Male
  Weight: 107.96 kg

DRUGS (6)
  1. GLYBURIDE (GLIBENCLAMIDE) [Concomitant]
     Active Substance: GLYBURIDE
  2. GLUCOPHAGE (METFORMIN) [Concomitant]
  3. ULORIC [Suspect]
     Active Substance: FEBUXOSTAT
     Indication: GOUT
     Route: 048
     Dates: start: 200905, end: 201010
  4. ANTIHYPERTENSIVES [Concomitant]
     Active Substance: UNSPECIFIED INGREDIENT
  5. ACTOS [Concomitant]
     Active Substance: PIOGLITAZONE HYDROCHLORIDE
  6. TRICOR [Concomitant]
     Active Substance: FENOFIBRATE

REACTIONS (7)
  - Rash [None]
  - Nausea [None]
  - Skin lesion [None]
  - Arthralgia [None]
  - Pain in extremity [None]
  - Squamous cell carcinoma [None]
  - Onychomycosis [None]

NARRATIVE: CASE EVENT DATE: 2009
